FAERS Safety Report 9054634 (Version 1)
Quarter: 2013Q1

REPORT INFORMATION
  Report Type: Spontaneous
  Country: US (occurrence: US)
  Receive Date: 20130208
  Receipt Date: 20130208
  Transmission Date: 20140127
  Serious: Yes (Hospitalization, Other)
  Sender: FDA-Public Use
  Company Number: US-BAYER-2013-015034

PATIENT
  Age: 44 Year
  Sex: Female

DRUGS (10)
  1. YAZ [Suspect]
     Indication: LIBIDO DECREASED
  2. YAZ [Suspect]
     Indication: HORMONE THERAPY
  3. OMEPRAZOLE [Concomitant]
     Indication: GASTROOESOPHAGEAL REFLUX DISEASE
     Dosage: UNK UNK, BID
  4. VENTOLIN [SALBUTAMOL] [Concomitant]
     Dosage: UNK UNK, PRN
  5. SYMBICORT [Concomitant]
     Indication: CHRONIC OBSTRUCTIVE PULMONARY DISEASE
     Dosage: 2 PUFFS, BID
  6. LAMICTAL [Concomitant]
     Dosage: 200 MG, UNK
  7. FLUOXETINE [Concomitant]
     Dosage: 10 MG, UNK
  8. CLONAZEPAM [Concomitant]
     Dosage: 0.5 MG, UNK
  9. BACLOFEN [Concomitant]
     Dosage: 10 MG, UNK
  10. SUCRALFATE [Concomitant]
     Dosage: 1 GRAM

REACTIONS (2)
  - Pulmonary embolism [Recovered/Resolved]
  - Cholelithiasis [None]
